FAERS Safety Report 15738271 (Version 3)
Quarter: 2019Q2

REPORT INFORMATION
  Report Type: Spontaneous
  Country: ES (occurrence: ES)
  Receive Date: 20181219
  Receipt Date: 20190521
  Transmission Date: 20190711
  Serious: Yes (Life-Threatening, Hospitalization)
  Sender: FDA-Public Use
  Company Number: ES-JNJFOC-20181218977

PATIENT
  Age: 36 Year
  Sex: Male

DRUGS (3)
  1. PREDNISONA CINFA [Suspect]
     Active Substance: PREDNISONE
     Indication: ANGIOEDEMA
     Dosage: 30MG CADA 24 HORAS
     Route: 048
     Dates: start: 20180916, end: 20180920
  2. CETIRIZINA (2364A) [Suspect]
     Active Substance: CETIRIZINE HYDROCHLORIDE
     Route: 048
  3. CETIRIZINA (2364A) [Suspect]
     Active Substance: CETIRIZINE HYDROCHLORIDE
     Indication: ANGIOEDEMA
     Dosage: 10MG CADA 24 HORAS
     Route: 048
     Dates: start: 20180916, end: 20180920

REACTIONS (1)
  - Mesenteric vein thrombosis [Recovered/Resolved]

NARRATIVE: CASE EVENT DATE: 20180920
